FAERS Safety Report 20742986 (Version 1)
Quarter: 2022Q2

REPORT INFORMATION
  Report Type: Spontaneous
  Country: US (occurrence: US)
  Receive Date: 20220425
  Receipt Date: 20220425
  Transmission Date: 20220720
  Serious: Yes (Life-Threatening, Other)
  Sender: FDA-Public Use
  Company Number: US-AUROBINDO-AUR-APL-2022-014403

PATIENT
  Age: 58 Year
  Sex: Female

DRUGS (1)
  1. METHADONE [Suspect]
     Active Substance: METHADONE HYDROCHLORIDE
     Indication: Substance use disorder
     Dosage: UNK
     Route: 065

REACTIONS (3)
  - Torsade de pointes [Unknown]
  - Electrocardiogram QT interval [Unknown]
  - Electrocardiogram R on T phenomenon [Unknown]
